FAERS Safety Report 20302618 (Version 1)
Quarter: 2022Q1

REPORT INFORMATION
  Report Type: Spontaneous
  Country: CN (occurrence: CN)
  Receive Date: 20220106
  Receipt Date: 20220106
  Transmission Date: 20220423
  Serious: Yes (Other)
  Sender: FDA-Public Use
  Company Number: CN-Blueprint Medicines Corporation-SO-CN-2022-000047

PATIENT
  Age: 67 Year
  Sex: Male

DRUGS (1)
  1. AVAPRITINIB [Suspect]
     Active Substance: AVAPRITINIB
     Indication: Gastrointestinal stromal tumour
     Route: 048
     Dates: start: 20211203

REACTIONS (4)
  - Atrial fibrillation [Recovering/Resolving]
  - Blood creatine phosphokinase increased [Recovering/Resolving]
  - Asthenia [Not Recovered/Not Resolved]
  - Face oedema [Not Recovered/Not Resolved]
